FAERS Safety Report 13845907 (Version 1)
Quarter: 2017Q3

REPORT INFORMATION
  Report Type: Spontaneous
  Country: US (occurrence: US)
  Receive Date: 20170808
  Receipt Date: 20170808
  Transmission Date: 20171127
  Serious: No
  Sender: FDA-Public Use
  Company Number: US-ROCHE-722174

PATIENT
  Age: 87 Year
  Sex: Female
  Weight: 72.6 kg

DRUGS (3)
  1. BONIVA [Suspect]
     Active Substance: IBANDRONATE SODIUM
     Indication: OSTEOPOROSIS
     Dosage: FROM TWO MONTHS
     Route: 048
  2. BELLADONNA [Concomitant]
     Active Substance: ATROPA BELLADONNA\HOMEOPATHICS
     Indication: GASTRIC DISORDER
  3. ATENOLOL. [Concomitant]
     Active Substance: ATENOLOL
     Route: 065

REACTIONS (1)
  - Back pain [Unknown]

NARRATIVE: CASE EVENT DATE: 20100813
